FAERS Safety Report 20577438 (Version 1)
Quarter: 2022Q1

REPORT INFORMATION
  Report Type: Spontaneous
  Country: US (occurrence: None)
  Receive Date: 20220310
  Receipt Date: 20220310
  Transmission Date: 20220423
  Serious: Yes (Hospitalization)
  Sender: FDA-Public Use
  Company Number: None

PATIENT
  Sex: Female
  Weight: 68.9 kg

DRUGS (4)
  1. IRINOTECAN [Suspect]
     Active Substance: IRINOTECAN
     Dates: start: 20210614, end: 20220222
  2. FLUOROURACIL [Suspect]
     Active Substance: FLUOROURACIL
     Dates: start: 20210614, end: 20220222
  3. OXALIPLATIN [Suspect]
     Active Substance: OXALIPLATIN
     Dates: start: 20210614, end: 20220222
  4. LEUCOVORIN CALCIUM [Suspect]
     Active Substance: LEUCOVORIN CALCIUM
     Dates: start: 20210614, end: 20220222

REACTIONS (4)
  - Diarrhoea [None]
  - Dyspnoea exertional [None]
  - Nausea [None]
  - Vomiting [None]

NARRATIVE: CASE EVENT DATE: 20220222
